FAERS Safety Report 11122437 (Version 3)
Quarter: 2016Q4

REPORT INFORMATION
  Report Type: Spontaneous
  Country: US (occurrence: US)
  Receive Date: 20150519
  Receipt Date: 20161114
  Transmission Date: 20170206
  Serious: No
  Sender: FDA-Public Use
  Company Number: US-GLAXOSMITHKLINE-US2015031087

PATIENT
  Sex: Female

DRUGS (2)
  1. ALLI [Suspect]
     Active Substance: ORLISTAT
     Indication: WEIGHT LOSS DIET
     Dosage: UNK
  2. ALLI [Suspect]
     Active Substance: ORLISTAT
     Dosage: UNK
     Dates: start: 2007

REACTIONS (8)
  - Weight increased [Not Recovered/Not Resolved]
  - Abnormal faeces [Recovered/Resolved]
  - Treatment noncompliance [Unknown]
  - Drug administration error [Unknown]
  - Steatorrhoea [Recovered/Resolved]
  - Drug ineffective [Unknown]
  - Faeces discoloured [Recovered/Resolved]
  - Product quality issue [Unknown]
